FAERS Safety Report 8401942-2 (Version None)
Quarter: 2012Q2

REPORT INFORMATION
  Report Type: 
  Country: None (occurrence: None)
  Receive Date: 20120601
  Receipt Date: 20120525
  Transmission Date: 20120825
  Serious: Yes (Disabling)
  Sender: FDA-Public Use
  Company Number: GB-PFIZER INC-2012126817

PATIENT
  Age: 94 Year
  Sex: Female

DRUGS (16)
  1. DOXYCYCLINE MONOHYDRATE [Suspect]
     Dosage: TWO TO START THEN ONE DAILY
     Route: 048
     Dates: start: 20120316
  2. LATANOPROST [Concomitant]
     Indication: GLAUCOMA
     Dosage: 50 MG 1 DROP EVERY NIGHT TO THE LEFT EYE
     Route: 047
     Dates: start: 20100920
  3. SENNA-MINT WAF [Concomitant]
     Dosage: 7.5 MG TAKE AT ONE OR TWO AT NIGHT
  4. CIPROFLOXACIN [Concomitant]
     Dosage: 250 MG IN 5MLS TWICE DAILY
     Route: 048
  5. SALMETEROL [Concomitant]
     Indication: ASTHMA
     Dosage: 125 UG, 2X/DAY
  6. ALBUTEROL [Concomitant]
     Dosage: 1100MG INHALED AS TWO DOSES WHEN NEEDED
  7. NITROFURANTOIN [Concomitant]
     Indication: RESPIRATORY TRACT INFECTION
     Dosage: 50 MG, 1X/DAY
     Route: 048
     Dates: start: 20120426
  8. AQUEOUS CREAM [Concomitant]
     Dosage: AS NEEDED
     Route: 061
  9. HYPROMELLOSE [Concomitant]
     Indication: GLAUCOMA
     Dosage: ONE DROP WHEN REQUIRED
     Route: 047
     Dates: start: 20110208
  10. TRIMETHOPRIM [Concomitant]
     Indication: INFECTION PROPHYLAXIS
     Dosage: AT 50MG IN 10ML TAKEN NIGHTL
  11. CALCIUM CARBONATE [Concomitant]
     Dosage: TWICE DAILY
     Route: 048
  12. DOXYCYCLINE MONOHYDRATE [Suspect]
     Dosage: TWO TO START THEN ONE DAILY
     Route: 048
     Dates: start: 20120412
  13. MACROGOL 3350 [Concomitant]
     Dosage: ONE SACHET DAILY
     Route: 048
  14. ALENDRONATE SODIUM [Concomitant]
     Dosage: 70 MG, WEEKLY
     Route: 048
     Dates: start: 20101110
  15. NITROFURANTOIN [Concomitant]
     Indication: URINARY TRACT INFECTION
     Dosage: 50 MG, 1X/DAY
     Route: 048
     Dates: start: 20120320
  16. ACETAMINOPHEN [Concomitant]
     Dosage: 250MG 2-4 SPOONFULS UP TO FOUR TIMES DAILY
     Route: 048
     Dates: start: 20120320

REACTIONS (1)
  - PRESYNCOPE [None]
